FAERS Safety Report 6016288-X (Version None)
Quarter: 2008Q4

REPORT INFORMATION
  Report Type: 
  Country: None (occurrence: None)
  Receive Date: 20081222
  Receipt Date: 20081209
  Transmission Date: 20090506
  Serious: Yes (Hospitalization)
  Sender: FDA-Public Use
  Company Number: IL-TEVA-182392ISR

PATIENT
  Age: 9 Year
  Sex: Female

DRUGS (1)
  1. GRISEOFULVIN TABLETS, 125 MG [Suspect]
     Indication: TINEA CAPITIS
     Route: 048
     Dates: start: 20071014

REACTIONS (1)
  - TYPE 1 DIABETES MELLITUS [None]
